FAERS Safety Report 15250918 (Version 1)
Quarter: 2018Q3

REPORT INFORMATION
  Report Type: Spontaneous
  Country: US (occurrence: US)
  Receive Date: 20180716
  Receipt Date: 20180716
  Transmission Date: 20181010
  Serious: Yes (Life-Threatening)
  Sender: FDA-Public Use
  Company Number: None

PATIENT
  Age: 62 Year
  Sex: Male
  Weight: 47.17 kg

DRUGS (2)
  1. OXALIPLATIN. [Suspect]
     Active Substance: OXALIPLATIN
     Indication: COLON CANCER
     Route: 042
     Dates: start: 20180112, end: 20180713
  2. BEVACIZUMAB. [Suspect]
     Active Substance: BEVACIZUMAB
     Indication: COLON CANCER
     Route: 042
     Dates: start: 20180615, end: 20180713

REACTIONS (10)
  - Pulse absent [None]
  - Syncope [None]
  - Unresponsive to stimuli [None]
  - Blood pressure increased [None]
  - Central nervous system haemorrhage [None]
  - Bradycardia [None]
  - Hypersensitivity [None]
  - Hypotension [None]
  - Hypertensive crisis [None]
  - Fall [None]

NARRATIVE: CASE EVENT DATE: 20180713
